FAERS Safety Report 9372550 (Version 2)
Quarter: 2013Q3

REPORT INFORMATION
  Report Type: Spontaneous
  Country: US (occurrence: US)
  Receive Date: 20130627
  Receipt Date: 20130709
  Transmission Date: 20140515
  Serious: Yes (Other)
  Sender: FDA-Public Use
  Company Number: US-PFIZER INC-2013187663

PATIENT
  Age: 87 Year
  Sex: Female
  Weight: 65.76 kg

DRUGS (3)
  1. LIPITOR [Suspect]
     Indication: BLOOD CHOLESTEROL INCREASED
     Dosage: 10 MG, 1X/DAY
     Dates: end: 201306
  2. ALDACTAZIDE [Suspect]
     Indication: HYPERTENSION
     Dosage: 25 MG, 1X/DAY
     Dates: start: 1998
  3. LEVOTHYROXINE [Concomitant]
     Indication: THYROID DISORDER
     Dosage: 75 UG, 1X/DAY
     Dates: start: 1993

REACTIONS (2)
  - Arthritis [Unknown]
  - Hearing impaired [Unknown]
